FAERS Safety Report 16454628 (Version 1)
Quarter: 2019Q2

REPORT INFORMATION
  Report Type: Spontaneous
  Country: HR (occurrence: HR)
  Receive Date: 20190620
  Receipt Date: 20190620
  Transmission Date: 20190711
  Serious: Yes (Other)
  Sender: FDA-Public Use
  Company Number: HR-TEVA-2019-HR-1065531

PATIENT
  Sex: Female

DRUGS (1)
  1. LOQUEN [Suspect]
     Active Substance: QUETIAPINE FUMARATE
     Route: 048
     Dates: start: 20190324, end: 20190324

REACTIONS (4)
  - Confusional state [Unknown]
  - Suicide attempt [Unknown]
  - Altered state of consciousness [Unknown]
  - Intentional overdose [Unknown]

NARRATIVE: CASE EVENT DATE: 20190324
